FAERS Safety Report 7292519-3 (Version None)
Quarter: 2011Q1

REPORT INFORMATION
  Report Type: 
  Country: None (occurrence: None)
  Receive Date: 20110215
  Receipt Date: 20110207
  Transmission Date: 20110831
  Serious: Yes (Hospitalization)
  Sender: FDA-Public Use
  Company Number: FR-ASTELLAS-2011US000550

PATIENT
  Sex: Male

DRUGS (6)
  1. CORTANCYL [Suspect]
     Indication: ACUTE LYMPHOCYTIC LEUKAEMIA
     Dosage: 100 MG, UID/QD
     Route: 048
     Dates: start: 20100802, end: 20100808
  2. DEPO-MEDROL [Suspect]
     Indication: PRODUCT USED FOR UNKNOWN INDICATION
     Dosage: 40 MG, UNKNOWN/D
     Route: 037
     Dates: start: 20100809, end: 20100826
  3. EMEND [Suspect]
     Indication: PRODUCT USED FOR UNKNOWN INDICATION
     Dosage: 80 MG UID/QD
     Route: 048
     Dates: start: 20100809, end: 20100820
  4. KIDROLASE [Suspect]
     Indication: ACUTE LYMPHOCYTIC LEUKAEMIA
     Dosage: 11000 IU, UID/QD
     Route: 042
     Dates: start: 20100828, end: 20100906
  5. CORTANCYL [Suspect]
     Dosage: 110.4 MG, UID/QD
     Route: 048
     Dates: start: 20100808, end: 20100822
  6. AMBISOME [Suspect]
     Indication: PRODUCT USED FOR UNKNOWN INDICATION
     Dosage: 50 MG (0.5 DF), UNKNOWN/D
     Route: 042
     Dates: start: 20100813, end: 20100914

REACTIONS (1)
  - DIABETES MELLITUS INADEQUATE CONTROL [None]
